FAERS Safety Report 6595376-3 (Version None)
Quarter: 2010Q1

REPORT INFORMATION
  Report Type: 
  Country: None (occurrence: None)
  Receive Date: 20100223
  Receipt Date: 20100216
  Transmission Date: 20100710
  Serious: Yes (Hospitalization)
  Sender: FDA-Public Use
  Company Number: US-BIOGENIDEC-2009BI028457

PATIENT
  Age: 67 Year
  Sex: Female

DRUGS (1)
  1. AVONEX [Suspect]
     Indication: MULTIPLE SCLEROSIS
     Route: 030
     Dates: start: 20080725

REACTIONS (7)
  - ABASIA [None]
  - DYSSTASIA [None]
  - FALL [None]
  - HEAD INJURY [None]
  - INTRACRANIAL HYPOTENSION [None]
  - LUMBAR SPINAL STENOSIS [None]
  - PARAPARESIS [None]
